FAERS Safety Report 10176691 (Version 1)
Quarter: 2014Q2

REPORT INFORMATION
  Report Type: Spontaneous
  Country: US (occurrence: None)
  Receive Date: 20140515
  Receipt Date: 20140515
  Transmission Date: 20141212
  Serious: No
  Sender: FDA-Public Use
  Company Number: None

PATIENT
  Age: 69 Year
  Sex: Female
  Weight: 96 kg

DRUGS (3)
  1. CYCLOPHOSPHAMIDE [Suspect]
  2. PENTOSTATIN [Suspect]
  3. RITUXIMAB [Suspect]

REACTIONS (1)
  - Blood potassium decreased [None]
